FAERS Safety Report 9184100 (Version 1)
Quarter: 2013Q1

REPORT INFORMATION
  Report Type: Spontaneous
  Country: US (occurrence: US)
  Receive Date: 20130322
  Receipt Date: 20130322
  Transmission Date: 20140127
  Serious: Yes (Other)
  Sender: FDA-Public Use
  Company Number: US-BRISTOL-MYERS SQUIBB COMPANY-16448789

PATIENT
  Age: 68 Year
  Sex: Male

DRUGS (3)
  1. ERBITUX [Suspect]
     Indication: LARYNGEAL CANCER
     Dosage: 400MG/M2
     Route: 042
     Dates: start: 20120308, end: 20120308
  2. TYLENOL [Concomitant]
  3. DIPHENHYDRAMINE [Concomitant]
     Route: 042
     Dates: start: 20120308, end: 20120308

REACTIONS (1)
  - Infusion related reaction [Unknown]
